FAERS Safety Report 22252748 (Version 2)
Quarter: 2023Q2

REPORT INFORMATION
  Report Type: Report from Study
  Country: US (occurrence: US)
  Receive Date: 20230426
  Receipt Date: 20230511
  Transmission Date: 20230722
  Serious: No
  Sender: FDA-Public Use
  Company Number: US-BIOVITRUM-2023-US-009737

PATIENT
  Age: 41 Year
  Sex: Male

DRUGS (1)
  1. KINERET [Suspect]
     Active Substance: ANAKINRA
     Indication: Pyrexia
     Dosage: DAILY
     Route: 058
     Dates: start: 20230416

REACTIONS (4)
  - Intentional product misuse [Unknown]
  - Burning sensation [Unknown]
  - Contusion [Unknown]
  - Injection site mass [Recovered/Resolved]
